FAERS Safety Report 15122522 (Version 1)
Quarter: 2018Q3

REPORT INFORMATION
  Report Type: Report from Study
  Country: BR (occurrence: BR)
  Receive Date: 20180709
  Receipt Date: 20180709
  Transmission Date: 20181010
  Serious: Yes (Other)
  Sender: FDA-Public Use
  Company Number: PHHY2018BR036038

PATIENT
  Age: 70 Year
  Sex: Female
  Weight: 85 kg

DRUGS (4)
  1. EXFORGE HCT [Suspect]
     Active Substance: AMLODIPINE BESYLATE\HYDROCHLOROTHIAZIDE\VALSARTAN
     Dosage: 1 DF, QD (10 MG AMLODIPINE/25 MG HYDROCHLOROTHIAZIDE/320 MG VALSARTAN)
     Route: 048
     Dates: start: 20180628
  2. APRESOLIN [Suspect]
     Active Substance: HYDRALAZINE HYDROCHLORIDE
     Indication: BLOOD PRESSURE ABNORMAL
     Dosage: UNK
     Route: 048
     Dates: start: 20180528, end: 20180628
  3. BENICAR [Suspect]
     Active Substance: OLMESARTAN MEDOXOMIL
     Indication: BLOOD PRESSURE ABNORMAL
     Dosage: 1 DF, QD
     Route: 048
     Dates: start: 20180528, end: 20180628
  4. EXFORGE HCT [Suspect]
     Active Substance: AMLODIPINE BESYLATE\HYDROCHLOROTHIAZIDE\VALSARTAN
     Indication: HYPERTENSION
     Dosage: 1 DF, QD (5 MG AMLODIPINE/12 MG HYDROCHLOROTHIAZIDE/160 MG VALSARTAN)
     Route: 048

REACTIONS (4)
  - Hypertension [Recovering/Resolving]
  - Limb discomfort [Recovered/Resolved]
  - Asthenia [Recovering/Resolving]
  - Fatigue [Unknown]

NARRATIVE: CASE EVENT DATE: 2017
